FAERS Safety Report 11943571 (Version 1)
Quarter: 2016Q1

REPORT INFORMATION
  Report Type: Spontaneous
  Country: US (occurrence: US)
  Receive Date: 20160125
  Receipt Date: 20160125
  Transmission Date: 20160526
  Serious: No
  Sender: FDA-Public Use
  Company Number: US-UNITED THERAPEUTICS-UNT-2015-012401

PATIENT
  Sex: Male
  Weight: 67.12 kg

DRUGS (1)
  1. REMODULIN [Suspect]
     Active Substance: TREPROSTINIL
     Indication: PULMONARY ARTERIAL HYPERTENSION
     Dosage: 0.02375 ?G/KG/MIN, CONTINUING
     Route: 041
     Dates: start: 20150817

REACTIONS (3)
  - Injection site rash [Unknown]
  - Injection site erythema [Unknown]
  - Injection site discharge [Unknown]

NARRATIVE: CASE EVENT DATE: 2015
